FAERS Safety Report 8134246-6 (Version None)
Quarter: 2012Q1

REPORT INFORMATION
  Report Type: 
  Country: None (occurrence: None)
  Receive Date: 20120201
  Receipt Date: 20120118
  Transmission Date: 20120608
  Serious: Yes (Death, Hospitalization, Other)
  Sender: FDA-Public Use
  Company Number: 2011PROUSA00864

PATIENT
  Age: 79 Year
  Sex: Male
  Weight: 66.2 kg

DRUGS (9)
  1. SANCTURA XR (TROSPIUM) [Concomitant]
  2. VITAMIN B-12 [Concomitant]
  3. PRAVASTATIN [Concomitant]
  4. ASPIRIN [Concomitant]
  5. PROVENGE [Suspect]
     Indication: PROSTATE CANCER METASTATIC
     Dosage: 250 ML, SINGLE, INTRAVENOUS
     Route: 042
     Dates: start: 20111205, end: 20111205
  6. CITALOPRAM HYDROBROMIDE [Concomitant]
  7. FISH OIL (FISH OIL) [Concomitant]
  8. LISINOPRIL [Concomitant]
  9. OS-CAL + D (CALCIUM CARBONATE, COLECALCIFEROL) [Concomitant]

REACTIONS (16)
  - ATRIAL FIBRILLATION [None]
  - MYOCARDIAL INFARCTION [None]
  - COUGH [None]
  - CEREBROVASCULAR ACCIDENT [None]
  - HAEMATURIA [None]
  - RESPIRATORY ARREST [None]
  - ANAEMIA [None]
  - AGITATION [None]
  - URINE BILIRUBIN INCREASED [None]
  - CONFUSIONAL STATE [None]
  - CARDIAC ANEURYSM [None]
  - RENAL FAILURE ACUTE [None]
  - EJECTION FRACTION DECREASED [None]
  - DEMENTIA [None]
  - TROPONIN I INCREASED [None]
  - LETHARGY [None]
